FAERS Safety Report 11787818 (Version 1)
Quarter: 2015Q4

REPORT INFORMATION
  Report Type: Spontaneous
  Country: US (occurrence: US)
  Receive Date: 20151130
  Receipt Date: 20151130
  Transmission Date: 20160305
  Serious: No
  Sender: FDA-Public Use
  Company Number: GXBR2009US00715

PATIENT
  Sex: Female
  Weight: 47.62 kg

DRUGS (2)
  1. TRIFLUOPERAZINE HCL TABLETS USP [Suspect]
     Active Substance: TRIFLUOPERAZINE HYDROCHLORIDE
     Indication: SCHIZOPHRENIA
     Dosage: 1 MG, QHS
     Route: 048
     Dates: start: 199402
  2. VITAMINS [Concomitant]
     Active Substance: VITAMINS
     Dosage: UNK DF, UNK
     Route: 048

REACTIONS (1)
  - Somnolence [Recovered/Resolved]

NARRATIVE: CASE EVENT DATE: 1994
